FAERS Safety Report 7456298-9 (Version None)
Quarter: 2011Q2

REPORT INFORMATION
  Report Type: 
  Country: None (occurrence: None)
  Receive Date: 20110503
  Receipt Date: 20110404
  Transmission Date: 20111010
  Serious: No
  Sender: FDA-Public Use
  Company Number: US-BAYER-2011-029323

PATIENT
  Age: 25 Year
  Sex: Female

DRUGS (1)
  1. MIRENA [Suspect]
     Indication: CONTRACEPTION
     Dosage: 20 ?G/D, CONT
     Route: 015
     Dates: start: 20110126

REACTIONS (7)
  - NAUSEA [None]
  - DECREASED APPETITE [None]
  - AMENORRHOEA [None]
  - UTERINE DISORDER [None]
  - ABDOMINAL PAIN LOWER [None]
  - POST PROCEDURAL HAEMORRHAGE [None]
  - HEADACHE [None]
